FAERS Safety Report 4367972-5 (Version None)
Quarter: 2004Q2

REPORT INFORMATION
  Report Type: 
  Country: None (occurrence: None)
  Receive Date: 20040601
  Receipt Date: 20040520
  Transmission Date: 20050107
  Serious: Yes (Other)
  Sender: FDA-Public Use
  Company Number: CHPA2004US02471

PATIENT
  Age: 3 Year
  Sex: Male
  Weight: 17.7 kg

DRUGS (1)
  1. TRIAMINIC COLD + NIGHT TIME COUGH (NCH) (CHLORPHENIRAMINE MALEATE, DEX [Suspect]
     Indication: COUGH
     Dosage: ONCE/SINGLE, ORAL
     Route: 048
     Dates: start: 20040301

REACTIONS (1)
  - CONVULSION [None]
